FAERS Safety Report 6434321-8 (Version None)
Quarter: 2009Q4

REPORT INFORMATION
  Report Type: 
  Country: None (occurrence: None)
  Receive Date: 20091110
  Receipt Date: 20090602
  Transmission Date: 20100525
  Serious: No
  Sender: FDA-Public Use
  Company Number: US-ASTRAZENECA-2009SE10014

PATIENT
  Sex: Female

DRUGS (3)
  1. PRILOSEC OTC [Suspect]
     Route: 048
     Dates: start: 20040101
  2. ANTIDEPRESSANTS [Concomitant]
     Indication: DEPRESSION
  3. ANXIETY MEDICATION [Concomitant]
     Indication: ANXIETY

REACTIONS (4)
  - ARTHROPATHY [None]
  - INCREASED TENDENCY TO BRUISE [None]
  - RIB FRACTURE [None]
  - WRIST FRACTURE [None]
